FAERS Safety Report 20451504 (Version 2)
Quarter: 2022Q1

REPORT INFORMATION
  Report Type: Spontaneous
  Country: US (occurrence: US)
  Receive Date: 20220209
  Receipt Date: 20220218
  Transmission Date: 20220423
  Serious: No
  Sender: FDA-Public Use
  Company Number: US-FRESENIUS KABI-FK202201517

PATIENT
  Age: 64 Year
  Sex: Male
  Weight: 114.3 kg

DRUGS (23)
  1. BIVALIRUDIN [Suspect]
     Active Substance: BIVALIRUDIN
     Indication: Product used for unknown indication
     Route: 040
     Dates: start: 20220208, end: 20220208
  2. BIVALIRUDIN [Suspect]
     Active Substance: BIVALIRUDIN
     Dosage: RATE: 40 ML/HR FROM A 250 MG/50 ML INFUSION
     Route: 041
     Dates: start: 20220208
  3. ASPIRIN [Concomitant]
     Active Substance: ASPIRIN
     Indication: Product used for unknown indication
     Dosage: GIVEN AROUND THE TIME OF THE BIVALIRUDIN INFUSION
     Route: 048
     Dates: start: 20220208
  4. LIDOCAINE [Concomitant]
     Active Substance: LIDOCAINE
     Indication: Product used for unknown indication
     Dosage: GIVEN AROUND THE TIME OF THE BIVALIRUDIN INFUSION
     Route: 023
     Dates: start: 20220208
  5. NITROGLYCERIN [Concomitant]
     Active Substance: NITROGLYCERIN
     Indication: Product used for unknown indication
     Dosage: IN DEXTROSE 5 PERCENT; GIVEN AROUND THE TIME OF THE BIVALIRUDIN INFUSION
     Route: 022
     Dates: start: 20220208
  6. NITROGLYCERIN [Concomitant]
     Active Substance: NITROGLYCERIN
     Dosage: IN DEXTROSE 5 PERCENT; GIVEN AROUND THE TIME OF THE BIVALIRUDIN INFUSION
     Route: 022
     Dates: start: 20220208
  7. VERAPAMIL [Concomitant]
     Active Substance: VERAPAMIL HYDROCHLORIDE
     Indication: Product used for unknown indication
     Dosage: GIVEN AROUND THE TIME OF THE BIVALIRUDIN INFUSION
     Route: 013
     Dates: start: 20220208
  8. FENTANYL [Concomitant]
     Active Substance: FENTANYL
     Indication: Product used for unknown indication
     Dosage: GIVEN AROUND THE TIME OF THE BIVALIRUDIN INFUSION
     Route: 042
     Dates: start: 20220208
  9. FENTANYL [Concomitant]
     Active Substance: FENTANYL
     Dosage: GIVEN AROUND THE TIME OF THE BIVALIRUDIN INFUSION
     Route: 042
     Dates: start: 20220208
  10. FENTANYL [Concomitant]
     Active Substance: FENTANYL
     Dosage: GIVEN AROUND THE TIME OF THE BIVALIRUDIN INFUSION
     Route: 042
     Dates: start: 20220208
  11. ASPIRIN [Concomitant]
     Active Substance: ASPIRIN
     Indication: Product used for unknown indication
     Dosage: TAKEN PRIOR TO ADMISSION
     Route: 065
  12. DICLOFENAC [Concomitant]
     Active Substance: DICLOFENAC
     Indication: Product used for unknown indication
     Dosage: TAKEN PRIOR TO ADMISSION
     Route: 065
  13. BUMETANIDE [Concomitant]
     Active Substance: BUMETANIDE
     Indication: Product used for unknown indication
     Dosage: TAKEN PRIOR TO ADMISSION
     Route: 065
  14. FENOFIBRATE [Concomitant]
     Active Substance: FENOFIBRATE
     Indication: Product used for unknown indication
     Dosage: TAKEN PRIOR TO ADMISSION
     Route: 065
  15. GABAPENTIN [Concomitant]
     Active Substance: GABAPENTIN
     Indication: Product used for unknown indication
     Dosage: TAKEN PRIOR TO ADMISSION
     Route: 065
  16. LOSARTAN [Concomitant]
     Active Substance: LOSARTAN
     Indication: Product used for unknown indication
     Dosage: TAKEN PRIOR TO ADMISSION
     Route: 065
  17. PANTOPRAZOLE [Concomitant]
     Active Substance: PANTOPRAZOLE
     Indication: Product used for unknown indication
     Dosage: TAKEN PRIOR TO ADMISSION
     Route: 065
  18. SILDENAFIL [Concomitant]
     Active Substance: SILDENAFIL
     Indication: Product used for unknown indication
     Dosage: TAKEN PRIOR TO ADMISSION
     Route: 065
  19. MONTELUKAST [Concomitant]
     Active Substance: MONTELUKAST SODIUM
     Indication: Product used for unknown indication
     Dosage: TAKEN PRIOR TO ADMISSION
     Route: 065
  20. METOPROLOL TARTRATE [Concomitant]
     Active Substance: METOPROLOL TARTRATE
     Indication: Product used for unknown indication
     Dosage: TAKEN PRIOR TO ADMISSION
     Route: 065
  21. TERBINAFINE [Concomitant]
     Active Substance: TERBINAFINE
     Indication: Product used for unknown indication
     Dosage: TAKEN PRIOR TO ADMISSION
     Route: 065
  22. CETIRIZINE [Concomitant]
     Active Substance: CETIRIZINE HYDROCHLORIDE
     Indication: Product used for unknown indication
     Dosage: TAKEN PRIOR TO ADMISSION
     Route: 065
  23. HEPARIN SODIUM [Concomitant]
     Active Substance: HEPARIN SODIUM
     Indication: Product used for unknown indication
     Dosage: 500 ML IRRIGATION X 3 BAGS
     Route: 065
     Dates: start: 20220208

REACTIONS (1)
  - Drug ineffective [Unknown]

NARRATIVE: CASE EVENT DATE: 20220208
